FAERS Safety Report 14967762 (Version 1)
Quarter: 2018Q2

REPORT INFORMATION
  Report Type: Spontaneous
  Country: GB (occurrence: GB)
  Receive Date: 20180604
  Receipt Date: 20180604
  Transmission Date: 20180711
  Serious: Yes (Other)
  Sender: FDA-Public Use
  Company Number: PHHY2018GB013458

PATIENT
  Age: 56 Year
  Sex: Female
  Weight: 51.71 kg

DRUGS (1)
  1. BISOPROLOL [Suspect]
     Active Substance: BISOPROLOL
     Indication: HYPERTENSION
     Dosage: 2.5 MG, QD
     Route: 048
     Dates: start: 20180106, end: 20180109

REACTIONS (5)
  - Dizziness postural [Recovered/Resolved]
  - Nasal odour [Recovered/Resolved]
  - Feeling abnormal [Recovered/Resolved]
  - Abnormal faeces [Recovered/Resolved]
  - Feeling cold [Recovered/Resolved]

NARRATIVE: CASE EVENT DATE: 20180107
